FAERS Safety Report 26202270 (Version 1)
Quarter: 2025Q4

REPORT INFORMATION
  Report Type: Spontaneous
  Country: US (occurrence: US)
  Receive Date: 20251226
  Receipt Date: 20251226
  Transmission Date: 20260118
  Serious: Yes (Death, Hospitalization, Other)
  Sender: BAXTER
  Company Number: US-BAXTER-2025BAX026238

PATIENT
  Age: 10 Year
  Sex: Male

DRUGS (4)
  1. CEFTRIAXONE [Suspect]
     Active Substance: CEFTRIAXONE
     Indication: Acute chest syndrome
     Dosage: UNK
     Route: 042
  2. CEFTRIAXONE [Suspect]
     Active Substance: CEFTRIAXONE
     Indication: Sickle cell anaemia with crisis
     Dosage: 2 G (72 MG/KG)
     Route: 042
  3. AZITHROMYCIN [Concomitant]
     Active Substance: AZITHROMYCIN
  4. LINEZOLID [Concomitant]
     Active Substance: LINEZOLID

REACTIONS (21)
  - Brain death [None]
  - Pupil fixed [Unknown]
  - Ischaemic stroke [Unknown]
  - Brain oedema [Unknown]
  - Multiple organ dysfunction syndrome [Unknown]
  - Haemorrhagic cerebral infarction [Unknown]
  - Cerebral mass effect [Unknown]
  - Reflexes abnormal [Unknown]
  - Agonal respiration [Unknown]
  - Autoimmune haemolytic anaemia [Fatal]
  - Haemolysis [Unknown]
  - Pain [Unknown]
  - Moaning [Unknown]
  - Opisthotonus [Unknown]
  - Unresponsive to stimuli [Unknown]
  - Metabolic acidosis [Unknown]
  - Anaemia [Unknown]
  - Haemoglobin decreased [Unknown]
  - Seizure [Unknown]
  - Haptoglobin decreased [Unknown]
  - Blood lactate dehydrogenase increased [Unknown]
